FAERS Safety Report 10083840 (Version 1)
Quarter: 2014Q2

REPORT INFORMATION
  Report Type: Spontaneous
  Country: US (occurrence: None)
  Receive Date: 20140415
  Receipt Date: 20140415
  Transmission Date: 20141212
  Serious: Yes (Other)
  Sender: FDA-Public Use
  Company Number: COR_00037_2014

PATIENT
  Age: 3 Year
  Sex: Female

DRUGS (2)
  1. CARBOPLATIN (CARBOPLATIN) [Suspect]
     Indication: GLIOMA
     Dosage: CUMULATIVE DOSE 2100 MG/M2
  2. CISPLATIN (CISPLATIN) [Suspect]
     Indication: GLIOMA
     Dosage: CUMULATIVE DOSE 1500 MG/M2

REACTIONS (3)
  - Diabetes insipidus [None]
  - Hypernatraemia [None]
  - Hypoacusis [None]
